FAERS Safety Report 7407237-8 (Version None)
Quarter: 2011Q2

REPORT INFORMATION
  Report Type: 
  Country: None (occurrence: None)
  Receive Date: 20110411
  Receipt Date: 20110329
  Transmission Date: 20111010
  Serious: Yes (Other)
  Sender: FDA-Public Use
  Company Number: PHHY2011JP16413

PATIENT
  Sex: Female

DRUGS (6)
  1. DIOVAN [Suspect]
     Indication: HYPERTENSION
     Dosage: 40 MG,DAILY
     Route: 048
     Dates: start: 20060416
  2. NEUQUINON [Concomitant]
     Dosage: 25 DF, DAILY
     Route: 048
     Dates: start: 20050821, end: 20110215
  3. ASPIRIN [Concomitant]
     Indication: CEREBRAL ISCHAEMIA
     Dosage: 100 DF, DAILY
     Route: 048
     Dates: start: 20050821, end: 20110215
  4. DIOVAN [Suspect]
     Dosage: 80 MG,DAILY
     Route: 048
     Dates: end: 20110215
  5. KAKKON-TO [Concomitant]
     Dosage: 25 DF, DAILY
     Route: 048
     Dates: end: 20110214
  6. LUVOX [Concomitant]
     Indication: DEPRESSION
     Dosage: 10 DF, DAILY
     Dates: start: 20050821, end: 20110215

REACTIONS (2)
  - NEUTROPHIL COUNT DECREASED [None]
  - WHITE BLOOD CELL COUNT DECREASED [None]
